FAERS Safety Report 7232203-5 (Version None)
Quarter: 2011Q1

REPORT INFORMATION
  Report Type: 
  Country: None (occurrence: None)
  Receive Date: 20110119
  Receipt Date: 20110110
  Transmission Date: 20110831
  Serious: No
  Sender: FDA-Public Use
  Company Number: US-BIOGENIDEC-2011BI001367

PATIENT
  Age: 45 Year
  Sex: Female

DRUGS (7)
  1. ANITDEPRESENT (NOS) [Concomitant]
     Indication: PSYCHIATRIC SYMPTOM
  2. TYSABRI [Suspect]
     Route: 042
     Dates: start: 20080829, end: 20080926
  3. DARVOCET [Concomitant]
  4. AVONEX [Concomitant]
     Indication: MULTIPLE SCLEROSIS
     Route: 030
     Dates: start: 20000101
  5. DARVOCET [Concomitant]
     Indication: HEMICEPHALALGIA
  6. TYSABRI [Suspect]
     Indication: MULTIPLE SCLEROSIS
     Route: 042
     Dates: start: 20100305
  7. LEXAPRO [Concomitant]
     Indication: PSYCHIATRIC SYMPTOM

REACTIONS (2)
  - NECK PAIN [None]
  - MULTIPLE SCLEROSIS [None]
